FAERS Safety Report 12271293 (Version 1)
Quarter: 2016Q2

REPORT INFORMATION
  Report Type: Report from Study
  Country: CA (occurrence: CA)
  Receive Date: 20160415
  Receipt Date: 20160415
  Transmission Date: 20160815
  Serious: Yes (Other)
  Sender: FDA-Public Use
  Company Number: CA-JNJFOC-20160409636

PATIENT
  Age: 17 Year
  Sex: Male
  Weight: 73.6 kg

DRUGS (1)
  1. REMICADE [Suspect]
     Active Substance: INFLIXIMAB
     Indication: CROHN^S DISEASE
     Route: 042
     Dates: start: 201509

REACTIONS (6)
  - Lower respiratory tract infection [Unknown]
  - Sinusitis [Unknown]
  - Abdominal pain upper [Not Recovered/Not Resolved]
  - Diarrhoea [Unknown]
  - Pneumonia [Unknown]
  - Mucous stools [Unknown]

NARRATIVE: CASE EVENT DATE: 201511
